FAERS Safety Report 8307268 (Version 2)
Quarter: 2013Q4

REPORT INFORMATION
  Report Type: Spontaneous
  Country: US (occurrence: US)
  Receive Date: 20111222
  Receipt Date: 20131209
  Transmission Date: 20140711
  Serious: Yes (Other)
  Sender: FDA-Public Use
  Company Number: US-BAYER-2011-121495

PATIENT
  Age: 44 Year
  Sex: Female
  Weight: 67.12 kg

DRUGS (8)
  1. YAZ [Suspect]
     Dosage: UNK
     Dates: start: 200707, end: 200807
  2. YASMIN [Suspect]
     Dosage: UNK
     Dates: start: 200707, end: 200807
  3. FLUTICASONE [Concomitant]
  4. ACIPHEX [Concomitant]
  5. REGLAN [Concomitant]
  6. HYDROCHLOROTHIAZIDE [Concomitant]
  7. SERTRALINE [Concomitant]
  8. PREVACID [Concomitant]

REACTIONS (6)
  - Gallbladder disorder [None]
  - Cholecystitis acute [None]
  - Injury [None]
  - Pain [None]
  - Post cholecystectomy syndrome [None]
  - Anxiety [None]
